FAERS Safety Report 6916288-9 (Version None)
Quarter: 2010Q3

REPORT INFORMATION
  Report Type: 
  Country: None (occurrence: None)
  Receive Date: 20100810
  Receipt Date: 20100728
  Transmission Date: 20110219
  Serious: Yes (Other)
  Sender: FDA-Public Use
  Company Number: JP-PFIZER INC-2010093554

PATIENT
  Age: 53 Year
  Sex: Female

DRUGS (3)
  1. ZOLOFT [Suspect]
     Dosage: 25 MG/DAY
     Route: 048
     Dates: start: 20100726, end: 20100727
  2. ZOLOFT [Suspect]
     Dosage: UNK
     Dates: start: 20100726, end: 20100727
  3. HORIZON [Concomitant]

REACTIONS (1)
  - FAECES DISCOLOURED [None]
